FAERS Safety Report 15717877 (Version 3)
Quarter: 2019Q1

REPORT INFORMATION
  Report Type: Spontaneous
  Country: US (occurrence: US)
  Receive Date: 20181213
  Receipt Date: 20190107
  Transmission Date: 20190417
  Serious: Yes (Other)
  Sender: FDA-Public Use
  Company Number: US-SA-2018SA338600

PATIENT
  Age: 62 Year
  Sex: Male

DRUGS (13)
  1. LOSARTAN HYDROCHLOROTHIAZIDE ACTAVIS [Concomitant]
     Active Substance: HYDROCHLOROTHIAZIDE\LOSARTAN POTASSIUM
  2. AMLODIPINE [Concomitant]
     Active Substance: AMLODIPINE BESYLATE
  3. METOPROLOL SUCCINATE. [Concomitant]
     Active Substance: METOPROLOL SUCCINATE
  4. OLOPATADINE. [Concomitant]
     Active Substance: OLOPATADINE
  5. GABAPENTIN. [Concomitant]
     Active Substance: GABAPENTIN
  6. FENOFIBRATE. [Concomitant]
     Active Substance: FENOFIBRATE
  7. GLIPIZIDE. [Concomitant]
     Active Substance: GLIPIZIDE
  8. SYNJARDY XR [Concomitant]
     Active Substance: EMPAGLIFLOZIN\METFORMIN HYDROCHLORIDE
  9. ATORVASTATIN CALCIUM. [Concomitant]
     Active Substance: ATORVASTATIN CALCIUM
  10. OMEGA 3 ACID ETHYL ESTERS [Concomitant]
     Active Substance: OMEGA-3-ACID ETHYL ESTERS
  11. PRALUENT [Suspect]
     Active Substance: ALIROCUMAB
     Indication: HYPERCHOLESTEROLAEMIA
     Dosage: 75 MG, QOW
     Route: 058
  12. NORTRIPTYLINE [Concomitant]
     Active Substance: NORTRIPTYLINE
  13. TRULICITY [Concomitant]
     Active Substance: DULAGLUTIDE

REACTIONS (9)
  - Influenza [Unknown]
  - Pain [Unknown]
  - Myocardial infarction [Unknown]
  - Oropharyngeal pain [Unknown]
  - Sinusitis [Unknown]
  - Confusional state [Unknown]
  - Myalgia [Unknown]
  - Heart rate irregular [Unknown]
  - High density lipoprotein increased [Unknown]
